FAERS Safety Report 4369468-3 (Version None)
Quarter: 2004Q2

REPORT INFORMATION
  Report Type: 
  Country: None (occurrence: None)
  Receive Date: 20040527
  Receipt Date: 20040512
  Transmission Date: 20050107
  Serious: Yes (Hospitalization, Other)
  Sender: FDA-Public Use
  Company Number: ZONI001416

PATIENT
  Age: 18 Year
  Sex: Female

DRUGS (3)
  1. ZONEGRAN [Suspect]
     Indication: CONVULSION
     Dosage: 400 MG DAILY ORAL
     Route: 048
     Dates: start: 20031201, end: 20040101
  2. PROZAC [Suspect]
     Indication: DEPRESSION
     Dosage: 20 MG DAILY
     Dates: start: 20040101
  3. TRILEPTAL [Concomitant]

REACTIONS (14)
  - AGGRESSION [None]
  - CATATONIA [None]
  - DEPRESSION [None]
  - FEELING ABNORMAL [None]
  - HAEMORRHAGE [None]
  - HEAD INJURY [None]
  - HOMICIDAL IDEATION [None]
  - MEDICATION ERROR [None]
  - PATIENT RESTRAINT [None]
  - PSYCHOTIC DISORDER [None]
  - REFUSAL OF TREATMENT BY PATIENT [None]
  - SUICIDAL IDEATION [None]
  - VICTIM OF SEXUAL ABUSE [None]
  - WEIGHT INCREASED [None]
